FAERS Safety Report 24396974 (Version 1)
Quarter: 2024Q4

REPORT INFORMATION
  Report Type: Spontaneous
  Country: US (occurrence: None)
  Receive Date: 20241004
  Receipt Date: 20241004
  Transmission Date: 20250115
  Serious: Yes (Hospitalization)
  Sender: Public
  Company Number: None

PATIENT
  Sex: Male
  Weight: 30.2 kg

DRUGS (6)
  1. MERCAPTOPURINE [Suspect]
     Active Substance: MERCAPTOPURINE
     Dates: start: 20240926
  2. METHOTREXATE [Suspect]
     Active Substance: METHOTREXATE
     Dates: start: 20240926
  3. PREDNISONE [Suspect]
     Active Substance: PREDNISONE
     Dates: start: 20240910
  4. VINCRISTINE SULFATE [Suspect]
     Active Substance: VINCRISTINE SULFATE
     Dates: start: 20240917
  5. DULOXETINE [Suspect]
     Active Substance: DULOXETINE
  6. SERTRALINE [Suspect]
     Active Substance: SERTRALINE HYDROCHLORIDE

REACTIONS (8)
  - Suicidal ideation [None]
  - Adjustment disorder [None]
  - Depressed mood [None]
  - Drug eruption [None]
  - Abnormal behaviour [None]
  - Self-destructive behaviour [None]
  - Major depression [None]
  - Anxiety [None]

NARRATIVE: CASE EVENT DATE: 20240924
